FAERS Safety Report 5502152-9 (Version None)
Quarter: 2007Q4

REPORT INFORMATION
  Report Type: 
  Country: None (occurrence: None)
  Receive Date: 20071030
  Receipt Date: 20071030
  Transmission Date: 20080405
  Serious: Yes (Other)
  Sender: FDA-Public Use
  Company Number: ES-JNJFOC-20070904767

PATIENT
  Sex: Male

DRUGS (4)
  1. RISPERIDONE [Suspect]
     Indication: PSYCHOTIC DISORDER
     Route: 030
  2. AMISULPIRIDE [Suspect]
     Indication: PSYCHOTIC DISORDER
  3. DEPAKENE [Concomitant]
  4. REXER FLAS [Concomitant]

REACTIONS (2)
  - HAND DEFORMITY [None]
  - TREMOR [None]
